FAERS Safety Report 6146502-1 (Version None)
Quarter: 2009Q2

REPORT INFORMATION
  Report Type: 
  Country: None (occurrence: None)
  Receive Date: 20090407
  Receipt Date: 20090326
  Transmission Date: 20091009
  Serious: Yes (Other)
  Sender: FDA-Public Use
  Company Number: IT-WYE-H07637709

PATIENT
  Sex: Female

DRUGS (6)
  1. CORDARONE [Suspect]
     Indication: ATRIAL FIBRILLATION
     Route: 048
     Dates: start: 20080101, end: 20080615
  2. LUVION [Concomitant]
     Route: 048
     Dates: start: 20080101, end: 20080610
  3. LANITOP [Concomitant]
     Route: 048
     Dates: start: 20080101, end: 20080615
  4. TRIATEC [Concomitant]
     Route: 048
     Dates: start: 20080101, end: 20080610
  5. MOMENT 200 [Concomitant]
     Indication: MUSCULOSKELETAL PAIN
     Route: 048
     Dates: start: 20080605, end: 20080615
  6. COUMADIN [Concomitant]
     Indication: ATRIAL FIBRILLATION
     Dosage: 5 MG PRN
     Route: 048
     Dates: start: 20040101, end: 20080615

REACTIONS (1)
  - HYPERTHYROIDISM [None]
